FAERS Safety Report 6977494-0 (Version None)
Quarter: 2010Q3

REPORT INFORMATION
  Report Type: 
  Country: None (occurrence: None)
  Receive Date: 20100910
  Receipt Date: 20100830
  Transmission Date: 20110219
  Serious: Yes (Death, Congenital Anomaly, Other)
  Sender: FDA-Public Use
  Company Number: IN-WATSON-2010-11779

PATIENT

DRUGS (4)
  1. LAMOTRIGINE [Suspect]
     Indication: DRUG EXPOSURE DURING PREGNANCY
     Dosage: 250 MG, DAILY
     Route: 048
  2. CLONAZEPAM [Suspect]
     Indication: DRUG EXPOSURE DURING PREGNANCY
     Dosage: 0.25 MG, DAILY
     Route: 064
  3. CLONAZEPAM [Suspect]
     Dosage: 0.375 MG, DAILY
     Route: 064
  4. CLONAZEPAM [Suspect]
     Dosage: 0.5 MG, DAILY,
     Route: 064

REACTIONS (9)
  - ASCITES [None]
  - ATRIAL SEPTAL DEFECT [None]
  - CONGENITAL CARDIOVASCULAR ANOMALY [None]
  - DRUG EXPOSURE DURING PREGNANCY [None]
  - HYDROPS FOETALIS [None]
  - INTRA-UTERINE DEATH [None]
  - NEONATAL ASPIRATION [None]
  - POLYDACTYLY [None]
  - VENTRICULAR SEPTAL DEFECT [None]
